FAERS Safety Report 5912975-X (Version None)
Quarter: 2008Q4

REPORT INFORMATION
  Report Type: 
  Country: None (occurrence: None)
  Receive Date: 20081008
  Receipt Date: 20081001
  Transmission Date: 20090506
  Serious: Yes (Hospitalization, Other)
  Sender: FDA-Public Use
  Company Number: US-PFIZER INC-2008052759

PATIENT
  Sex: Male

DRUGS (6)
  1. CELEBREX [Suspect]
     Indication: ARTHRALGIA
     Dates: start: 20021001
  2. CELEBREX [Suspect]
     Indication: BACK PAIN
  3. CELEBREX [Suspect]
  4. CELEBREX [Suspect]
     Indication: PAIN IN EXTREMITY
  5. CELEBREX [Suspect]
     Indication: NECK PAIN
  6. CELEBREX [Suspect]
     Indication: MUSCULOSKELETAL PAIN

REACTIONS (2)
  - AORTIC ANEURYSM [None]
  - MYOCARDIAL INFARCTION [None]
